FAERS Safety Report 6083004-5 (Version None)
Quarter: 2009Q1

REPORT INFORMATION
  Report Type: 
  Country: None (occurrence: None)
  Receive Date: 20090218
  Receipt Date: 20090206
  Transmission Date: 20090719
  Serious: Yes (Death)
  Sender: FDA-Public Use
  Company Number: CA-GENENTECH-276964

PATIENT
  Sex: Male

DRUGS (1)
  1. OMALIZUMAB [Suspect]
     Indication: DRUG USE FOR UNKNOWN INDICATION
     Dosage: 300 MG, UNK
     Route: 058
     Dates: start: 20070823, end: 20080821

REACTIONS (1)
  - DEATH [None]
